FAERS Safety Report 9412028 (Version 2)
Quarter: 2013Q3

REPORT INFORMATION
  Report Type: Spontaneous
  Country: US (occurrence: US)
  Receive Date: 20130722
  Receipt Date: 20130809
  Transmission Date: 20140515
  Serious: No
  Sender: FDA-Public Use
  Company Number: US-PFIZER INC-2013211273

PATIENT
  Age: 80 Year
  Sex: Female
  Weight: 56.69 kg

DRUGS (2)
  1. ADVIL [Suspect]
     Indication: ARTHRALGIA
     Dosage: UNK, AS NEEDED
     Dates: start: 20130620, end: 20130621
  2. SYNTHROID [Concomitant]
     Dosage: 50 MCG, DAILY

REACTIONS (6)
  - Hypersensitivity [Recovered/Resolved]
  - Oropharyngeal pain [Recovered/Resolved]
  - Swollen tongue [Recovered/Resolved]
  - Tongue blistering [Recovered/Resolved]
  - Malaise [Recovered/Resolved]
  - Reaction to drug excipients [Recovered/Resolved]
